FAERS Safety Report 8615718-4 (Version None)
Quarter: 2012Q3

REPORT INFORMATION
  Report Type: 
  Country: None (occurrence: None)
  Receive Date: 20120823
  Receipt Date: 20120813
  Transmission Date: 20120928
  Serious: Yes (Hospitalization)
  Sender: FDA-Public Use
  Company Number: BE-ABBOTT-09P-013-0496182-00

PATIENT
  Sex: Female

DRUGS (6)
  1. NEUROBION [Concomitant]
     Indication: PARENTERAL NUTRITION
     Dosage: INTRAGLUTEAL EVERY 2 DAYS
     Dates: start: 20090324, end: 20090404
  2. LEKOVIT CA [Concomitant]
     Indication: OSTEOPOROSIS PROPHYLAXIS
     Dosage: 880/1000 MG
     Dates: start: 20000303
  3. PENTASA [Concomitant]
     Indication: CROHN'S DISEASE
     Dates: start: 20060101, end: 20080923
  4. HUMIRA [Suspect]
     Indication: CROHN'S DISEASE
     Route: 058
     Dates: start: 20080619
  5. MESALAMINE [Concomitant]
     Indication: CROHN'S DISEASE
  6. BUDESONIDE [Concomitant]
     Indication: CROHN'S DISEASE
     Dates: end: 20070601

REACTIONS (1)
  - PANCREATITIS [None]
